APPROVED DRUG PRODUCT: FLUOCINONIDE
Active Ingredient: FLUOCINONIDE
Strength: 0.05% **Federal Register determination that product was not discontinued or withdrawn for safety or effectiveness reasons**
Dosage Form/Route: CREAM;TOPICAL
Application: N019117 | Product #001
Applicant: SUN PHARMA CANADA INC
Approved: Jun 26, 1984 | RLD: Yes | RS: No | Type: DISCN